FAERS Safety Report 20198744 (Version 3)
Quarter: 2024Q1

REPORT INFORMATION
  Report Type: Report from Study
  Country: FR (occurrence: FR)
  Receive Date: 20211217
  Receipt Date: 20240315
  Transmission Date: 20240410
  Serious: Yes (Hospitalization, Other)
  Sender: FDA-Public Use
  Company Number: FR-SERVIER-S20011111

PATIENT

DRUGS (7)
  1. PEGASPARGASE [Suspect]
     Active Substance: PEGASPARGASE
     Indication: Acute lymphocytic leukaemia
     Dosage: 2175, IU, QD
     Route: 042
     Dates: start: 20200915, end: 20200915
  2. PREDNISOLONE [Suspect]
     Active Substance: PREDNISOLONE
     Indication: Acute lymphocytic leukaemia
     Dosage: 100 MG (D8 TO D28)
     Route: 048
     Dates: start: 20200911, end: 20201001
  3. VINCRISTINE [Suspect]
     Active Substance: VINCRISTINE
     Indication: Acute lymphocytic leukaemia
     Dosage: 2 MG (D8, D15, D22, D29)
     Route: 042
     Dates: start: 20200911, end: 20201002
  4. DAUNORUBICIN [Suspect]
     Active Substance: DAUNORUBICIN
     Indication: Acute lymphocytic leukaemia
     Dosage: 50 MG (D8, D15, D22, D29)
     Route: 042
     Dates: start: 20200911, end: 20201002
  5. METHOTREXATE SODIUM [Suspect]
     Active Substance: METHOTREXATE SODIUM
     Indication: Acute lymphocytic leukaemia
     Dosage: 15 MG (D13, D24)
     Route: 037
     Dates: start: 20200916, end: 20200927
  6. CYTARABINE [Suspect]
     Active Substance: CYTARABINE
     Indication: Acute lymphocytic leukaemia
     Dosage: 30 MG (D13, D24)
     Route: 037
     Dates: start: 20200916, end: 20200927
  7. HYDROCORTISONE [Suspect]
     Active Substance: HYDROCORTISONE
     Indication: Acute lymphocytic leukaemia
     Dosage: 15 MG (D13, D24)
     Route: 037
     Dates: start: 20200916, end: 20200927

REACTIONS (5)
  - Blood fibrinogen decreased [Recovered/Resolved]
  - Coagulopathy [Recovered/Resolved]
  - Hypertriglyceridaemia [Recovering/Resolving]
  - Asthenia [Recovered/Resolved]
  - Headache [Recovered/Resolved]

NARRATIVE: CASE EVENT DATE: 20200920
